FAERS Safety Report 24558309 (Version 2)
Quarter: 2024Q4

REPORT INFORMATION
  Report Type: Report from Study
  Country: US (occurrence: US)
  Receive Date: 20241029
  Receipt Date: 20241225
  Transmission Date: 20250115
  Serious: Yes (Hospitalization)
  Sender: ROCHE
  Company Number: US-ROCHE-10000115089

PATIENT
  Age: 58 Year
  Sex: Female

DRUGS (1)
  1. OCREVUS [Suspect]
     Active Substance: OCRELIZUMAB
     Indication: Multiple sclerosis
     Dosage: THERAPY IS ONGOING.
     Route: 065
     Dates: start: 20240420

REACTIONS (7)
  - COVID-19 [Recovered/Resolved]
  - Pain [Recovered/Resolved]
  - Headache [Recovered/Resolved]
  - Oropharyngeal pain [Recovered/Resolved]
  - Lethargy [Recovered/Resolved]
  - Pneumonia [Recovered/Resolved]
  - Blood immunoglobulin G decreased [Recovering/Resolving]

NARRATIVE: CASE EVENT DATE: 20240604
